FAERS Safety Report 9410660 (Version 1)
Quarter: 2013Q3

REPORT INFORMATION
  Report Type: Spontaneous
  Country: NZ (occurrence: NZ)
  Receive Date: 20130719
  Receipt Date: 20130719
  Transmission Date: 20140515
  Serious: Yes (Hospitalization, Other)
  Sender: FDA-Public Use
  Company Number: NZ-ABBOTT-13P-118-1118304-00

PATIENT
  Age: 29 Year
  Sex: Male

DRUGS (5)
  1. HUMIRA [Suspect]
     Indication: CROHN^S DISEASE
     Dates: start: 20081204
  2. HUMIRA [Suspect]
     Dates: start: 20100826
  3. 6-MP [Suspect]
     Indication: PRODUCT USED FOR UNKNOWN INDICATION
     Dates: start: 200901
  4. 6-MP [Suspect]
     Dates: start: 201003, end: 201008
  5. INFLIXIMAB [Suspect]
     Indication: PRODUCT USED FOR UNKNOWN INDICATION
     Dosage: 8 WEEKLY
     Dates: start: 20111130, end: 201212

REACTIONS (29)
  - Anal fistula [Unknown]
  - Anal abscess [Unknown]
  - Liver function test abnormal [Recovered/Resolved]
  - Drug ineffective [Unknown]
  - Crohn^s disease [Unknown]
  - Gastrointestinal mucosal disorder [Unknown]
  - Iron deficiency [Unknown]
  - Treatment noncompliance [Unknown]
  - Proctitis [Unknown]
  - Gastrointestinal ulcer [Unknown]
  - Pancytopenia [Unknown]
  - Episcleritis [Unknown]
  - Mouth ulceration [Unknown]
  - Crohn^s disease [Unknown]
  - Depression [Unknown]
  - Loss of employment [Unknown]
  - Partner stress [Unknown]
  - Mobility decreased [Recovering/Resolving]
  - Quality of life decreased [Recovering/Resolving]
  - Rectal discharge [Unknown]
  - Anal fistula [Unknown]
  - Anal abscess [Unknown]
  - Hospitalisation [Unknown]
  - Fistula [Unknown]
  - Proctalgia [Unknown]
  - Proctitis [Unknown]
  - Colostomy [Unknown]
  - Activities of daily living impaired [Recovering/Resolving]
  - Anal stenosis [Unknown]
